FAERS Safety Report 19226639 (Version 3)
Quarter: 2021Q2

REPORT INFORMATION
  Report Type: Spontaneous
  Country: US (occurrence: US)
  Receive Date: 20210506
  Receipt Date: 20210630
  Transmission Date: 20210717
  Serious: Yes (Other)
  Sender: FDA-Public Use
  Company Number: US-ASTRAZENECA-2021A394471

PATIENT
  Age: 28434 Day
  Sex: Female
  Weight: 80.7 kg

DRUGS (1)
  1. IMFINZI [Suspect]
     Active Substance: DURVALUMAB
     Indication: NON-SMALL CELL LUNG CANCER
     Dosage: 1500.0MG UNKNOWN
     Route: 042
     Dates: start: 20210405, end: 20210405

REACTIONS (1)
  - Hepatitis [Unknown]
